FAERS Safety Report 18550047 (Version 1)
Quarter: 2020Q4

REPORT INFORMATION
  Report Type: Spontaneous
  Country: US (occurrence: US)
  Receive Date: 20201126
  Receipt Date: 20201126
  Transmission Date: 20210114
  Serious: No
  Sender: FDA-Public Use
  Company Number: US-JNJFOC-20201115831

PATIENT
  Age: 81 Year
  Sex: Female
  Weight: 49.94 kg

DRUGS (1)
  1. MENS ROGAINE EXTRA STRENGTH [Suspect]
     Active Substance: MINOXIDIL
     Indication: ALOPECIA
     Dosage: DOSE: THE LINE IN THE DROPPER AND THATS IT.
     Route: 061

REACTIONS (5)
  - Application site pain [Recovered/Resolved]
  - Product use issue [Unknown]
  - Application site scab [Recovered/Resolved]
  - Application site pruritus [Recovered/Resolved]
  - Off label use [Unknown]

NARRATIVE: CASE EVENT DATE: 20201009
